FAERS Safety Report 7320811-2 (Version None)
Quarter: 2011Q1

REPORT INFORMATION
  Report Type: 
  Country: None (occurrence: None)
  Receive Date: 20110228
  Receipt Date: 20110217
  Transmission Date: 20110831
  Serious: Yes (Death, Other)
  Sender: FDA-Public Use
  Company Number: US-ROCHE-759403

PATIENT
  Age: 25 Year
  Sex: Female

DRUGS (1)
  1. ALL-TRANS-RETINOIC ACID [Suspect]
     Dosage: DRUG WAS DISCONTINUED.
     Route: 065

REACTIONS (2)
  - GENITAL ULCERATION [None]
  - SEPSIS [None]
